FAERS Safety Report 13499035 (Version 1)
Quarter: 2017Q2

REPORT INFORMATION
  Report Type: Spontaneous
  Country: US (occurrence: US)
  Receive Date: 20170429
  Receipt Date: 20170429
  Transmission Date: 20170830
  Serious: Yes (Other)
  Sender: FDA-Public Use
  Company Number: None

PATIENT
  Age: 27 Year
  Sex: Male
  Weight: 84.15 kg

DRUGS (3)
  1. HYDROCODONE/ACETAMINOPHEN 10/325 [Suspect]
     Active Substance: ACETAMINOPHEN\HYDROCODONE
     Indication: PAIN
     Dosage: ?          QUANTITY:15 TABLET(S);?
     Route: 048
  2. HYDROCODONE [Concomitant]
     Active Substance: HYDROCODONE
  3. OMEPRAZOLE. [Concomitant]
     Active Substance: OMEPRAZOLE

REACTIONS (6)
  - Drug ineffective [None]
  - Malaise [None]
  - Nausea [None]
  - Hyperhidrosis [None]
  - Pain [None]
  - Product substitution issue [None]

NARRATIVE: CASE EVENT DATE: 20170112
